FAERS Safety Report 4488023-8 (Version None)
Quarter: 2004Q4

REPORT INFORMATION
  Report Type: 
  Country: None (occurrence: None)
  Receive Date: 20041028
  Receipt Date: 20041022
  Transmission Date: 20050328
  Serious: Yes (Death, Life-Threatening, Hospitalization)
  Sender: FDA-Public Use
  Company Number: US-MERCK-0410USA03619

PATIENT
  Age: 64 Year
  Sex: Male

DRUGS (1)
  1. VIOXX [Suspect]
     Indication: ANALGESIC EFFECT
     Route: 048

REACTIONS (3)
  - ADVERSE EVENT [None]
  - CARDIAC DISORDER [None]
  - CEREBROVASCULAR ACCIDENT [None]
